FAERS Safety Report 19867296 (Version 5)
Quarter: 2022Q4

REPORT INFORMATION
  Report Type: Report from Study
  Country: CO (occurrence: CO)
  Receive Date: 20210921
  Receipt Date: 20221018
  Transmission Date: 20230113
  Serious: Yes (Hospitalization, Other)
  Sender: FDA-Public Use
  Company Number: PHHY2019CO088517

PATIENT
  Age: 43 Year
  Sex: Female
  Weight: 60 kg

DRUGS (16)
  1. XOLAIR [Suspect]
     Active Substance: OMALIZUMAB
     Indication: Asthma
     Dosage: 600 MG, BIW
     Route: 058
     Dates: start: 20171213, end: 201806
  2. XOLAIR [Suspect]
     Active Substance: OMALIZUMAB
     Dosage: 150 MG, BIW
     Route: 058
     Dates: end: 201806
  3. XOLAIR [Suspect]
     Active Substance: OMALIZUMAB
     Dosage: 1200 MG, QMO
     Route: 058
  4. XOLAIR [Suspect]
     Active Substance: OMALIZUMAB
     Dosage: 600 MG, BIW
     Route: 058
  5. MONTELUKAST SODIUM [Suspect]
     Active Substance: MONTELUKAST SODIUM
     Indication: Asthma
     Dosage: UNK
     Route: 065
  6. MONTELUKAST [Suspect]
     Active Substance: MONTELUKAST SODIUM
     Indication: Asthma
     Dosage: 10 MG, Q24H (STARTED 4 YEARS AGO)
     Route: 048
  7. PREGABALIN [Suspect]
     Active Substance: PREGABALIN
     Indication: Pain
     Dosage: 150 MG, Q12H (STARTED 6 YEARS AGO)
     Route: 048
  8. SERETIDE [Concomitant]
     Active Substance: FLUTICASONE PROPIONATE\SALMETEROL XINAFOATE
     Indication: Asthma
     Dosage: UNK
     Route: 065
  9. BUPRENORPHINE [Concomitant]
     Active Substance: BUPRENORPHINE
     Indication: Pain
     Dosage: 70 UG, 4 DAYS (STARTED 6 YEARS)
     Route: 062
  10. BUDESONIDE [Concomitant]
     Active Substance: BUDESONIDE
     Indication: Asthma
     Dosage: 320 MG, Q12H (STARTED 3 YEARS)
  11. LORAZEPAM [Concomitant]
     Active Substance: LORAZEPAM
     Indication: Depression
     Dosage: 20 MG, Q24H (STARTED 6 YEARS)
     Route: 048
  12. LORAZEPAM [Concomitant]
     Active Substance: LORAZEPAM
     Indication: Anxiety
  13. CLONAZEPAM [Concomitant]
     Active Substance: CLONAZEPAM
     Indication: Depression
     Dosage: 8 DRP, Q24H (STARTED 6 YEARS)
     Route: 048
  14. CLONAZEPAM [Concomitant]
     Active Substance: CLONAZEPAM
     Indication: Anxiety
  15. DULOXETINE [Concomitant]
     Active Substance: DULOXETINE
     Indication: Depression
     Dosage: 20 MG, Q24H (STARTED 6 YEARS)
     Route: 048
  16. DULOXETINE [Concomitant]
     Active Substance: DULOXETINE
     Indication: Anxiety

REACTIONS (16)
  - Neoplasm malignant [Unknown]
  - Illness [Not Recovered/Not Resolved]
  - Paralysis [Not Recovered/Not Resolved]
  - Osteoarthritis [Not Recovered/Not Resolved]
  - Concomitant disease aggravated [Not Recovered/Not Resolved]
  - Choking [Unknown]
  - Rheumatoid arthritis [Unknown]
  - Anxiety [Unknown]
  - Immunoglobulins decreased [Unknown]
  - Malaise [Recovering/Resolving]
  - Immunoglobulins abnormal [Not Recovered/Not Resolved]
  - Sensitivity to weather change [Unknown]
  - Mental disorder [Unknown]
  - Speech disorder [Unknown]
  - Laryngitis [Unknown]
  - Incorrect dose administered [Unknown]

NARRATIVE: CASE EVENT DATE: 20180701
